FAERS Safety Report 24062162 (Version 1)
Quarter: 2024Q3

REPORT INFORMATION
  Report Type: Spontaneous
  Country: US (occurrence: None)
  Receive Date: 20240707
  Receipt Date: 20240707
  Transmission Date: 20241016
  Serious: Yes (Hospitalization)
  Sender: Public
  Company Number: None

PATIENT
  Age: 45 Year
  Sex: Male
  Weight: 83.25 kg

DRUGS (1)
  1. .DELTA.8-TETRAHYDROCANNABIPHOROL\HERBALS [Suspect]
     Active Substance: .DELTA.8-TETRAHYDROCANNABIPHOROL\HERBALS
     Dates: start: 20240707

REACTIONS (7)
  - Treatment failure [None]
  - Throat irritation [None]
  - Choking [None]
  - Vomiting projectile [None]
  - Pallor [None]
  - Hyperhidrosis [None]
  - Heart rate increased [None]

NARRATIVE: CASE EVENT DATE: 20240707
